FAERS Safety Report 5808271-1 (Version None)
Quarter: 2008Q3

REPORT INFORMATION
  Report Type: 
  Country: None (occurrence: None)
  Receive Date: 20080709
  Receipt Date: 20080625
  Transmission Date: 20090109
  Serious: Yes (Hospitalization)
  Sender: FDA-Public Use
  Company Number: 2008S1000217

PATIENT

DRUGS (1)
  1. CUBICIN [Suspect]
     Indication: STAPHYLOCOCCAL INFECTION

REACTIONS (3)
  - EOSINOPHILIC PNEUMONIA [None]
  - LUNG INFILTRATION [None]
  - PULMONARY EMBOLISM [None]
